FAERS Safety Report 4672923-X (Version None)
Quarter: 2005Q2

REPORT INFORMATION
  Report Type: 
  Country: None (occurrence: None)
  Receive Date: 20050524
  Receipt Date: 20050511
  Transmission Date: 20051028
  Serious: Yes (Other)
  Sender: FDA-Public Use
  Company Number: 2005072685

PATIENT
  Age: 13 Year
  Sex: Male
  Weight: 45.3597 kg

DRUGS (1)
  1. DRAMAMINE [Suspect]
     Indication: MOTION SICKNESS
     Dosage: 20 TABLETS AT ONCE ORAL
     Route: 048
     Dates: start: 20050511, end: 20050511

REACTIONS (3)
  - FEELING ABNORMAL [None]
  - HALLUCINATION [None]
  - VOMITING [None]
